FAERS Safety Report 17639659 (Version 1)
Quarter: 2020Q2

REPORT INFORMATION
  Report Type: Report from Study
  Country: FR (occurrence: FR)
  Receive Date: 20200407
  Receipt Date: 20200407
  Transmission Date: 20200713
  Serious: Yes (Hospitalization)
  Sender: FDA-Public Use
  Company Number: FR-CELGENEUS-FRA-20200400955

PATIENT
  Age: 80 Year
  Sex: Female
  Weight: 57 kg

DRUGS (2)
  1. FEDRATINIB [Suspect]
     Active Substance: FEDRATINIB
     Indication: PRODUCT USED FOR UNKNOWN INDICATION
     Route: 048
     Dates: start: 20200210
  2. FEDRATINIB [Suspect]
     Active Substance: FEDRATINIB
     Route: 048
     Dates: start: 20200309

REACTIONS (1)
  - Vitamin B1 deficiency [Unknown]

NARRATIVE: CASE EVENT DATE: 20200318
